FAERS Safety Report 7085211-1 (Version None)
Quarter: 2010Q4

REPORT INFORMATION
  Report Type: 
  Country: None (occurrence: None)
  Receive Date: 20101105
  Receipt Date: 20101101
  Transmission Date: 20110411
  Serious: Yes (Death, Life-Threatening, Hospitalization, Other)
  Sender: FDA-Public Use
  Company Number: PHHY2010JP39664

PATIENT
  Sex: Male
  Weight: 63 kg

DRUGS (21)
  1. AFINITOR [Suspect]
     Indication: METASTATIC RENAL CELL CARCINOMA
     Dosage: 10 MG/DAY
     Route: 048
     Dates: start: 20100514, end: 20100629
  2. OXYCONTIN [Concomitant]
     Indication: METASTATIC RENAL CELL CARCINOMA
     Dosage: 60 MG
     Route: 048
     Dates: end: 20100705
  3. GABAPENTIN [Concomitant]
     Indication: METASTATIC RENAL CELL CARCINOMA
     Dosage: 400 MG
     Route: 048
     Dates: end: 20100706
  4. ZOMETA [Concomitant]
     Indication: METASTASES TO BONE
     Dosage: 4 MG
     Route: 042
     Dates: start: 20100507, end: 20100702
  5. RISPERDAL [Concomitant]
     Indication: DELIRIUM
     Dosage: 0.5 MG
     Route: 048
     Dates: end: 20100706
  6. CALONAL [Concomitant]
     Indication: METASTATIC RENAL CELL CARCINOMA
     Dosage: 400 MG
     Route: 048
     Dates: end: 20100703
  7. MAGMITT [Concomitant]
     Indication: PROPHYLAXIS
     Dosage: 1500 MG, UNK
     Route: 048
     Dates: end: 20100706
  8. OXINORM [Concomitant]
     Indication: METASTATIC RENAL CELL CARCINOMA
     Dosage: 2.5 MG
     Route: 048
     Dates: end: 20100706
  9. NOVAMIN [Concomitant]
     Indication: PROPHYLAXIS
     Dosage: 10 MG
     Route: 048
     Dates: end: 20100706
  10. EURAX [Concomitant]
     Indication: ECZEMA ASTEATOTIC
     Route: 062
  11. HIRUDOID [Concomitant]
     Indication: ECZEMA ASTEATOTIC
     Dosage: UNK
     Route: 062
     Dates: start: 20100521, end: 20100604
  12. MYSER [Concomitant]
     Indication: ECZEMA ASTEATOTIC
     Dosage: UNK
     Route: 062
     Dates: start: 20100521, end: 20100604
  13. AZUNOL [Concomitant]
     Indication: STOMATITIS
     Dosage: UNK
     Dates: start: 20100522, end: 20100604
  14. SLOW-K [Concomitant]
     Dosage: 1200 MG, UNK
     Route: 062
     Dates: start: 20100706, end: 20100708
  15. DEXALTIN [Concomitant]
     Indication: STOMATITIS
     Dosage: UNK
     Route: 062
     Dates: start: 20100523, end: 20100604
  16. MYSLEE [Concomitant]
     Indication: INSOMNIA
     Dosage: 5 MG, UNK
     Route: 048
     Dates: end: 20100705
  17. EURODIN [Concomitant]
     Dosage: 2 MG, UNK
     Route: 048
     Dates: start: 20100618, end: 20100702
  18. FLURBIPROFEN [Concomitant]
     Indication: METASTATIC RENAL CELL CARCINOMA
     Dosage: 100 MG, UNK
     Route: 042
     Dates: start: 20100704, end: 20100705
  19. GASTER [Concomitant]
     Indication: PROPHYLAXIS
     Dosage: 20 MG, UNK
     Route: 042
     Dates: start: 20100705, end: 20100708
  20. OMEPRAL [Concomitant]
     Indication: PROPHYLAXIS
     Dosage: 20 MG, UNK
     Route: 042
     Dates: start: 20100709, end: 20100710
  21. DUROTEP JANSSEN [Concomitant]
     Indication: METASTATIC RENAL CELL CARCINOMA
     Dosage: 2.1 MG, UNK
     Route: 062
     Dates: start: 20100706, end: 20100710

REACTIONS (15)
  - ANAEMIA [None]
  - BLOOD BETA-D-GLUCAN INCREASED [None]
  - BLOOD CREATININE INCREASED [None]
  - COUGH [None]
  - DYSPNOEA [None]
  - GENERAL PHYSICAL HEALTH DETERIORATION [None]
  - GENERALISED OEDEMA [None]
  - HYPOTENSION [None]
  - INTERSTITIAL LUNG DISEASE [None]
  - LYMPHOCYTE COUNT DECREASED [None]
  - MALAISE [None]
  - PNEUMOCYSTIS JIROVECI PNEUMONIA [None]
  - RESPIRATORY DISTRESS [None]
  - RESPIRATORY RATE INCREASED [None]
  - WHEEZING [None]
